FAERS Safety Report 10192115 (Version 2)
Quarter: 2014Q2

REPORT INFORMATION
  Report Type: Spontaneous
  Country: US (occurrence: US)
  Receive Date: 20140523
  Receipt Date: 20140624
  Transmission Date: 20141212
  Serious: No
  Sender: FDA-Public Use
  Company Number: US-PFIZER INC-2014138772

PATIENT
  Age: 67 Year
  Sex: Male
  Weight: 95.24 kg

DRUGS (1)
  1. LIPITOR [Suspect]
     Dosage: UNK

REACTIONS (2)
  - Muscle spasms [Unknown]
  - Musculoskeletal chest pain [Unknown]
